FAERS Safety Report 8007536-5 (Version None)
Quarter: 2011Q4

REPORT INFORMATION
  Report Type: 
  Country: None (occurrence: None)
  Receive Date: 20111227
  Receipt Date: 20111216
  Transmission Date: 20120403
  Serious: Yes (Hospitalization)
  Sender: FDA-Public Use
  Company Number: US-BAYER-2011-100145

PATIENT
  Age: 37 Year
  Sex: Female
  Weight: 98 kg

DRUGS (6)
  1. ANTIBIOTICS [Concomitant]
  2. OXYCONTIN [Concomitant]
  3. DILAUDID [Concomitant]
     Route: 042
  4. YAZ [Suspect]
  5. OXYCODONE HCL [Concomitant]
  6. YAZ [Suspect]
     Indication: PREMENSTRUAL SYNDROME
     Dosage: UNK
     Route: 048
     Dates: start: 20070301, end: 20070501

REACTIONS (8)
  - ANXIETY [None]
  - PULMONARY EMBOLISM [None]
  - INJURY [None]
  - DYSPNOEA [None]
  - DISCOMFORT [None]
  - PAIN [None]
  - LUNG DISORDER [None]
  - HAEMOPTYSIS [None]
